FAERS Safety Report 5882415-8 (Version None)
Quarter: 2008Q3

REPORT INFORMATION
  Report Type: 
  Country: None (occurrence: None)
  Receive Date: 20080913
  Receipt Date: 20080801
  Transmission Date: 20090109
  Serious: No
  Sender: FDA-Public Use
  Company Number: US-ABBOTT-08P-163-0468670-00

PATIENT
  Sex: Female
  Weight: 58.112 kg

DRUGS (1)
  1. HUMIRA [Suspect]
     Indication: RHEUMATOID ARTHRITIS
     Dosage: 40 MG ON DAY 1
     Route: 058
     Dates: start: 20080724

REACTIONS (5)
  - ERYTHEMA [None]
  - INJECTION SITE DISCOLOURATION [None]
  - INJECTION SITE NODULE [None]
  - INJECTION SITE PAIN [None]
  - INJECTION SITE PRURITUS [None]
